FAERS Safety Report 5237193-2 (Version None)
Quarter: 2007Q1

REPORT INFORMATION
  Report Type: 
  Country: None (occurrence: None)
  Receive Date: 20070213
  Receipt Date: 20070131
  Transmission Date: 20070707
  Serious: Yes (Other)
  Sender: FDA-Public Use
  Company Number: CA-JNJFOC-20070202736

PATIENT
  Age: 40 Year
  Sex: Female
  Weight: 64 kg

DRUGS (6)
  1. INFLIXIMAB [Suspect]
     Dosage: WEEK 22
     Route: 042
  2. INFLIXIMAB [Suspect]
     Dosage: WEEK 14
     Route: 042
  3. INFLIXIMAB [Suspect]
     Dosage: WEEK 6
     Route: 042
  4. INFLIXIMAB [Suspect]
     Dosage: WEEK 2
     Route: 042
  5. INFLIXIMAB [Suspect]
     Indication: PSORIASIS
     Dosage: DAY 0
     Route: 042
  6. CONTRACEPTIVES [Concomitant]
     Route: 048

REACTIONS (2)
  - HEPATITIS [None]
  - LUPUS-LIKE SYNDROME [None]
